FAERS Safety Report 19672587 (Version 1)
Quarter: 2021Q3

REPORT INFORMATION
  Report Type: Spontaneous
  Country: NL (occurrence: NL)
  Receive Date: 20210808
  Receipt Date: 20210808
  Transmission Date: 20211014
  Serious: Yes (Other)
  Sender: FDA-Public Use
  Company Number: NL-ACCORD-234575

PATIENT
  Sex: Male
  Weight: 87 kg

DRUGS (10)
  1. IRON [Concomitant]
     Active Substance: IRON
     Dosage: TABLET, 200 MG (MILLIGRAM)
  2. DUTASTERIDE. [Concomitant]
     Active Substance: DUTASTERIDE
     Dosage: CAPSULE, 0,5 MG (MILLIGRAM)
  3. SELOKEN [Interacting]
     Active Substance: METOPROLOL
     Indication: ANGINA PECTORIS
     Dosage: TABLET 200MG, MGA
  4. OMEPRAZOLE. [Concomitant]
     Active Substance: OMEPRAZOLE
     Dosage: CAPSULE 20MG, MSR
  5. ELIQUIS [Concomitant]
     Active Substance: APIXABAN
     Dosage: TABLET, 5 MG (MILLIGRAM)
  6. CLOPIDOGREL [Concomitant]
     Active Substance: CLOPIDOGREL BISULFATE
     Dosage: TABLET, 75 MG (MILLIGRAM)
  7. ISOSORBIDE. [Suspect]
     Active Substance: ISOSORBIDE
     Indication: ANGINA PECTORIS
     Dosage: MODIFIED?RELEASE TABLET, 20 MG (MILLIGRAMS)
  8. CANDESARTAN. [Concomitant]
     Active Substance: CANDESARTAN
     Dosage: TABLET, 4 MG (MILLIGRAM)
  9. ATORVASTATIN [Concomitant]
     Active Substance: ATORVASTATIN
     Dosage: TABLET, 80 MG (MILLIGRAM)
  10. FOSFOMYCIN [Interacting]
     Active Substance: FOSFOMYCIN
     Indication: CYSTITIS
     Dosage: 3G, 3 X PER WEEK 1 DOSE OF 3000MG
     Dates: start: 20210622

REACTIONS (4)
  - Drug interaction [Unknown]
  - Arrhythmia [Not Recovered/Not Resolved]
  - Condition aggravated [Not Recovered/Not Resolved]
  - Angina pectoris [Not Recovered/Not Resolved]
